FAERS Safety Report 21205853 (Version 1)
Quarter: 2022Q3

REPORT INFORMATION
  Report Type: Spontaneous
  Country: US (occurrence: US)
  Receive Date: 20220812
  Receipt Date: 20220812
  Transmission Date: 20221026
  Serious: Yes (Hospitalization)
  Sender: FDA-Public Use
  Company Number: US-MYLANLABS-2022M1084127

PATIENT
  Age: 57 Year
  Sex: Male

DRUGS (10)
  1. TRIAMCINOLONE [Suspect]
     Active Substance: TRIAMCINOLONE
     Indication: Trigeminal nerve disorder
     Dosage: UNK
     Route: 065
  2. TRIAMCINOLONE [Suspect]
     Active Substance: TRIAMCINOLONE
     Indication: Skin ulcer
  3. LIDOCAINE [Suspect]
     Active Substance: LIDOCAINE
     Indication: Trigeminal nerve disorder
     Dosage: UNK
     Route: 065
  4. LIDOCAINE [Suspect]
     Active Substance: LIDOCAINE
     Indication: Skin ulcer
  5. GABAPENTIN [Suspect]
     Active Substance: GABAPENTIN
     Indication: Skin ulcer
     Dosage: UNK
     Route: 048
  6. GABAPENTIN [Suspect]
     Active Substance: GABAPENTIN
     Indication: Trigeminal nerve disorder
  7. LIDOCAINE [Suspect]
     Active Substance: LIDOCAINE
     Indication: Trigeminal nerve disorder
     Dosage: UNK
     Route: 061
  8. LIDOCAINE [Suspect]
     Active Substance: LIDOCAINE
     Indication: Skin ulcer
  9. BOTULINUM TOXIN NOS [Suspect]
     Active Substance: BOTULINUM TOXIN NOS
     Indication: Trigeminal nerve disorder
     Dosage: UNK
     Route: 065
  10. BOTULINUM TOXIN NOS [Suspect]
     Active Substance: BOTULINUM TOXIN NOS
     Indication: Skin ulcer

REACTIONS (1)
  - Drug ineffective [Unknown]
